FAERS Safety Report 5117185-4 (Version None)
Quarter: 2006Q3

REPORT INFORMATION
  Report Type: 
  Country: None (occurrence: None)
  Receive Date: 20060928
  Receipt Date: 20060914
  Transmission Date: 20061208
  Serious: Yes (Other)
  Sender: FDA-Public Use
  Company Number: 2006110939

PATIENT
  Age: 49 Year
  Sex: Female

DRUGS (2)
  1. NORVASC [Suspect]
     Dosage: (5 MG)
  2. ALTACE [Suspect]
     Dosage: (20 MG)

REACTIONS (3)
  - DIABETES MELLITUS [None]
  - HEADACHE [None]
  - IRRITABLE BOWEL SYNDROME [None]
